FAERS Safety Report 6704333-5 (Version None)
Quarter: 2010Q2

REPORT INFORMATION
  Report Type: 
  Country: None (occurrence: None)
  Receive Date: 20100423
  Receipt Date: 20100130
  Transmission Date: 20101027
  Serious: No
  Sender: FDA-Public Use
  Company Number: ALL1-2010-00486

PATIENT
  Age: 6 Year
  Sex: Female
  Weight: 26.8 kg

DRUGS (1)
  1. VYVANSE [Suspect]
     Indication: ATTENTION DEFICIT/HYPERACTIVITY DISORDER
     Dosage: 30 MG, 1X/DAY:QD,ORAL
     Route: 048
     Dates: start: 20100129

REACTIONS (6)
  - ABDOMINAL PAIN UPPER [None]
  - AFFECT LABILITY [None]
  - IRRITABILITY [None]
  - LOGORRHOEA [None]
  - NASOPHARYNGITIS [None]
  - PAIN [None]
